FAERS Safety Report 10502470 (Version 3)
Quarter: 2014Q4

REPORT INFORMATION
  Report Type: Spontaneous
  Country: US (occurrence: US)
  Receive Date: 20141007
  Receipt Date: 20141019
  Transmission Date: 20150528
  Serious: Yes (Death, Life-Threatening, Other)
  Sender: FDA-Public Use
  Company Number: US-BRISTOL-MYERS SQUIBB COMPANY-18021329

PATIENT
  Age: 52 Year
  Sex: Female
  Weight: 73.47 kg

DRUGS (7)
  1. ENALAPRIL [Concomitant]
     Active Substance: ENALAPRIL
  2. LEVOXYL [Concomitant]
     Active Substance: LEVOTHYROXINE SODIUM
  3. LASIX [Concomitant]
     Active Substance: FUROSEMIDE
  4. METFORMIN [Concomitant]
     Active Substance: METFORMIN HYDROCHLORIDE
  5. BYETTA [Suspect]
     Active Substance: EXENATIDE
     Indication: DIABETES MELLITUS
     Route: 058
     Dates: start: 20070401, end: 20080313
  6. LIPITOR [Concomitant]
     Active Substance: ATORVASTATIN CALCIUM
  7. FLOVENT [Concomitant]
     Active Substance: FLUTICASONE PROPIONATE

REACTIONS (5)
  - Weight decreased [Unknown]
  - Adenocarcinoma pancreas [Fatal]
  - Hepatic cancer [Unknown]
  - Abdominal pain [Unknown]
  - Lung neoplasm malignant [Unknown]

NARRATIVE: CASE EVENT DATE: 200704
